FAERS Safety Report 6498527-4 (Version None)
Quarter: 2009Q4

REPORT INFORMATION
  Report Type: 
  Country: None (occurrence: None)
  Receive Date: 20091215
  Receipt Date: 20091202
  Transmission Date: 20100525
  Serious: Yes (Death, Hospitalization)
  Sender: FDA-Public Use
  Company Number: GB-MERCK-0912GBR00019

PATIENT
  Age: 53 Year
  Sex: Male

DRUGS (4)
  1. ZOCOR [Suspect]
     Indication: BLOOD CHOLESTEROL ABNORMAL
     Route: 048
  2. AMINOSALICYLATE CALCIUM [Concomitant]
     Indication: PROCTOCOLITIS
     Route: 065
  3. ASPIRIN [Concomitant]
     Route: 065
  4. DIPYRIDAMOLE [Concomitant]
     Route: 065

REACTIONS (2)
  - ANTIPHOSPHOLIPID SYNDROME [None]
  - MELAENA [None]
